FAERS Safety Report 9408664 (Version 1)
Quarter: 2013Q3

REPORT INFORMATION
  Report Type: Spontaneous
  Country: US (occurrence: None)
  Receive Date: 20130716
  Receipt Date: 20130716
  Transmission Date: 20140515
  Serious: Yes (Other)
  Sender: FDA-Public Use
  Company Number: FK201302425

PATIENT
  Age: 48 Year
  Sex: Female

DRUGS (17)
  1. LIDOCAINE (MANUFACTURER UNKNOWN) (LIDOCAINE) (LIDOCAINE) [Suspect]
     Indication: BACK PAIN
     Route: 042
  2. HYDROMORFON (HYDROMORPHONE HYDROCHLORIDE) (HYDROMORPHONE HYDROCHLORIDE) [Concomitant]
  3. FUROSEMIDE [Concomitant]
  4. ESCITALOPRAM (ESCITALOPRAM) (ESCITALOPRAM) [Concomitant]
  5. PANTOPRAZOLE (PANTOPRAZOLE SODIUM) (PANTOPRAZOLE SODIUM) [Concomitant]
  6. SUMATRIPTAN (SUMARTRIPTAN) (SUMATRIPTAN) [Concomitant]
  7. TEMAZEPAM (TEMAZEPAM) (TEMAZEPAM) [Concomitant]
  8. MIDAZOLAM (MIDAZOLAM) (MIDAZOLAM) [Concomitant]
  9. FENTANYL (FENTANYL) (FENTANYL) [Concomitant]
  10. PROPOFOL (PROPOFOL) (PROPOFOL) [Concomitant]
  11. SUCCINYCHOLINE (SUXAMETHONIUM CHLORIDE) (SUXAMETHONIUM CHLORIDE) [Concomitant]
  12. CIPROFLOXACIN (CIPROFLOXACIN) (CIPROFLOXACIN) [Concomitant]
  13. METRONIDAZOLE (METRONIDAZOLE) (METRONIDAZOLE) [Concomitant]
  14. VECURONIUM (VERCURONIUM) (VECURONIUM) [Concomitant]
  15. DESFLURANE (DESFLURANE) (DESFLURANE) [Concomitant]
  16. KETAMINE (KETAMINE HYDROCHLORIDE) (KETAMINE HYDROCHLORIDE) [Concomitant]
  17. METHADONE(METHADONE) [Suspect]

REACTIONS (1)
  - Methaemoglobinaemia [None]
